FAERS Safety Report 5759773-8 (Version None)
Quarter: 2008Q2

REPORT INFORMATION
  Report Type: 
  Country: None (occurrence: None)
  Receive Date: 20080605
  Receipt Date: 20080526
  Transmission Date: 20081010
  Serious: Yes (Life-Threatening, Hospitalization)
  Sender: FDA-Public Use
  Company Number: B0520382C

PATIENT
  Sex: Female

DRUGS (1)
  1. TOPOTECAN [Suspect]
     Dosage: 4MG WEEKLY
     Route: 042
     Dates: start: 20070605, end: 20070619

REACTIONS (1)
  - ILEUS [None]
